FAERS Safety Report 5856624-8 (Version None)
Quarter: 2008Q3

REPORT INFORMATION
  Report Type: 
  Country: None (occurrence: None)
  Receive Date: 20080825
  Receipt Date: 20080111
  Transmission Date: 20090109
  Serious: No
  Sender: FDA-Public Use
  Company Number: US-ASTRAZENECA-2008UW00813

PATIENT
  Age: 69 Year
  Sex: Female
  Weight: 95.3 kg

DRUGS (9)
  1. IRESSA [Suspect]
     Indication: LUNG NEOPLASM MALIGNANT
     Dates: start: 20020801
  2. IRON COUMADIN [Concomitant]
  3. SYNTHROID [Concomitant]
  4. ARISEPT [Concomitant]
  5. NAMENDA [Concomitant]
  6. NIFEDICIL [Concomitant]
  7. ATENOLOL [Concomitant]
  8. PREDNISONE TAB [Concomitant]
  9. EFFEXOR [Concomitant]

REACTIONS (5)
  - DIARRHOEA [None]
  - INGROWING NAIL [None]
  - MYALGIA [None]
  - PAIN IN EXTREMITY [None]
  - RASH [None]
